FAERS Safety Report 9311410 (Version 1)
Quarter: 2013Q2

REPORT INFORMATION
  Report Type: Spontaneous
  Country: US (occurrence: US)
  Receive Date: 20130528
  Receipt Date: 20130528
  Transmission Date: 20140414
  Serious: Yes (Hospitalization)
  Sender: FDA-Public Use
  Company Number: US-BAYER-2013-064900

PATIENT
  Age: 36 Year
  Sex: Female

DRUGS (5)
  1. YAZ [Suspect]
  2. SERTRALINE [Concomitant]
     Dosage: 100 MG, UNK
     Dates: start: 20080501, end: 20080706
  3. CLARITIN [Concomitant]
  4. ALBUTEROL [Concomitant]
  5. ZOLOFT [Concomitant]

REACTIONS (1)
  - Pulmonary embolism [None]
